FAERS Safety Report 9808610 (Version 2)
Quarter: 2014Q3

REPORT INFORMATION
  Report Type: Spontaneous
  Country: US (occurrence: US)
  Receive Date: 20140110
  Receipt Date: 20140808
  Transmission Date: 20150326
  Serious: Yes (Hospitalization, Other)
  Sender: FDA-Public Use
  Company Number: US-009507513-1401USA003352

PATIENT
  Sex: Female
  Weight: 91.16 kg

DRUGS (1)
  1. NUVARING [Suspect]
     Active Substance: ETHINYL ESTRADIOL\ETONOGESTREL
     Indication: PRODUCT USED FOR UNKNOWN INDICATION
     Dosage: 0.12MG-0.015MG/24HR 1 Q3WKS
     Route: 067
     Dates: end: 20130216

REACTIONS (19)
  - Vena cava filter insertion [Unknown]
  - Cerebral infarction [Unknown]
  - Nausea [Recovered/Resolved]
  - Adverse drug reaction [Recovered/Resolved]
  - Subdural haematoma evacuation [Recovering/Resolving]
  - Blood glucose increased [Unknown]
  - May-Thurner syndrome [Unknown]
  - Eating disorder [Unknown]
  - Haemorrhage [Recovered/Resolved]
  - Cerebellar haematoma [Recovering/Resolving]
  - Cerebellar ischaemia [Unknown]
  - Deep vein thrombosis [Recovered/Resolved]
  - Pain [Unknown]
  - Anxiety [Recovered/Resolved]
  - Migraine [Unknown]
  - Vomiting [Recovered/Resolved]
  - Muscle spasms [Unknown]
  - Scar pain [Unknown]
  - Ear pain [Unknown]

NARRATIVE: CASE EVENT DATE: 20121022
